FAERS Safety Report 6595893-6 (Version None)
Quarter: 2010Q1

REPORT INFORMATION
  Report Type: 
  Country: None (occurrence: None)
  Receive Date: 20100219
  Receipt Date: 20100219
  Transmission Date: 20100710
  Serious: Yes (Life-Threatening, Hospitalization, Other)
  Sender: FDA-Public Use
  Company Number: None

PATIENT
  Age: 60 Year
  Sex: Female
  Weight: 77.1115 kg

DRUGS (1)
  1. FOSAMAX [Suspect]
     Dosage: ONCE WEEKLY
     Dates: start: 20060101, end: 20100101

REACTIONS (4)
  - COUGH [None]
  - DYSPEPSIA [None]
  - HYPOPHAGIA [None]
  - WEIGHT DECREASED [None]
